FAERS Safety Report 6643155-0 (Version None)
Quarter: 2010Q1

REPORT INFORMATION
  Report Type: 
  Country: None (occurrence: None)
  Receive Date: 20100319
  Receipt Date: 20100309
  Transmission Date: 20100710
  Serious: Yes (Other)
  Sender: FDA-Public Use
  Company Number: PHEH2010US03043

PATIENT
  Sex: Female

DRUGS (5)
  1. ZOMETA [Suspect]
     Dosage: UNK
     Dates: start: 20090727, end: 20100222
  2. FEMARA [Suspect]
  3. XELODA [Suspect]
  4. TAXOTERE [Suspect]
  5. CHEMOTHERAPEUTICS NOS [Concomitant]

REACTIONS (5)
  - BONE DISORDER [None]
  - GINGIVAL BLISTER [None]
  - OSTEONECROSIS [None]
  - SURGERY [None]
  - VOMITING [None]
